FAERS Safety Report 4975079-9 (Version None)
Quarter: 2006Q2

REPORT INFORMATION
  Report Type: 
  Country: None (occurrence: None)
  Receive Date: 20060414
  Receipt Date: 20060414
  Transmission Date: 20061013
  Serious: Yes (Other)
  Sender: FDA-Public Use
  Company Number: None

PATIENT
  Age: 7 Year
  Weight: 30.4 kg

DRUGS (1)
  1. PEG ASPARAGINASE 750 IU/ML ENZON [Suspect]
     Indication: T-CELL TYPE ACUTE LEUKAEMIA
     Dosage: 2575 IU ONCE IV
     Route: 042
     Dates: start: 20060310, end: 20060310

REACTIONS (2)
  - PELVIC VENOUS THROMBOSIS [None]
  - PYREXIA [None]
